FAERS Safety Report 7277515-4 (Version None)
Quarter: 2010Q4

REPORT INFORMATION
  Report Type: 
  Country: None (occurrence: None)
  Receive Date: 20101201
  Receipt Date: 20091224
  Transmission Date: 20110411
  Serious: Yes (Life-Threatening, Other)
  Sender: FDA-Public Use
  Company Number: 300067

PATIENT
  Age: 70 Year
  Sex: Male
  Weight: 90.7 kg

DRUGS (2)
  1. LEVEMIR [Suspect]
     Indication: INSULIN-REQUIRING TYPE 2 DIABETES MELLITUS
     Dosage: 60 IU, BID, SUBCUTANEOUS
     Route: 058
     Dates: start: 20080101
  2. NOVOLOG [Suspect]
     Indication: INSULIN-REQUIRING TYPE 2 DIABETES MELLITUS
     Dosage: 5 IU, TID AC, SUBCUTANEOUS
     Route: 058
     Dates: start: 20080101

REACTIONS (1)
  - DIABETIC COMA [None]
